FAERS Safety Report 5487386-4 (Version None)
Quarter: 2007Q4

REPORT INFORMATION
  Report Type: 
  Country: None (occurrence: None)
  Receive Date: 20071016
  Receipt Date: 20071012
  Transmission Date: 20080405
  Serious: Yes (Hospitalization)
  Sender: FDA-Public Use
  Company Number: GB-BOEHRINGER INGELHEIM PHARMACEUTICALS, INC.-2007-UK-03211UK

PATIENT
  Age: 69 Year
  Sex: Female

DRUGS (7)
  1. PERSANTIN (00015/0052R) [Suspect]
     Indication: TRANSIENT ISCHAEMIC ATTACK
     Route: 048
  2. ASPIRIN [Suspect]
     Indication: TRANSIENT ISCHAEMIC ATTACK
     Route: 048
  3. AMLODIPINE [Concomitant]
     Route: 048
  4. CO-CODAMOL [Concomitant]
     Dosage: TAKEN AS NECESSARY
     Route: 048
  5. GLUCOSAMINE [Concomitant]
     Dosage: NOT REPORTED
  6. SIMVASTATIN [Concomitant]
     Route: 048
  7. VALSARTAN [Concomitant]
     Route: 048

REACTIONS (2)
  - HAEMATEMESIS [None]
  - MELAENA [None]
